FAERS Safety Report 5801549-7 (Version None)
Quarter: 2008Q3

REPORT INFORMATION
  Report Type: 
  Country: None (occurrence: None)
  Receive Date: 20080703
  Receipt Date: 20080703
  Transmission Date: 20090109
  Serious: Yes (Other)
  Sender: FDA-Public Use
  Company Number: None

PATIENT
  Sex: Female
  Weight: 68.0396 kg

DRUGS (1)
  1. TOPAMAX [Suspect]
     Indication: BIPOLAR DISORDER
     Dates: start: 20060101, end: 20080101

REACTIONS (3)
  - AMNESIA [None]
  - MENTAL IMPAIRMENT [None]
  - SPEECH DISORDER [None]
